FAERS Safety Report 4555864-8 (Version None)
Quarter: 2005Q1

REPORT INFORMATION
  Report Type: 
  Country: None (occurrence: None)
  Receive Date: 20050118
  Receipt Date: 20040923
  Transmission Date: 20050727
  Serious: Yes (Hospitalization)
  Sender: FDA-Public Use
  Company Number: A001-002-006225

PATIENT
  Age: 78 Year
  Sex: Male
  Weight: 84 kg

DRUGS (1)
  1. ARICEPT [Suspect]
     Indication: DEMENTIA ALZHEIMER'S TYPE
     Dosage: ORAL
     Route: 048
     Dates: start: 20020101, end: 20030201

REACTIONS (2)
  - DIARRHOEA [None]
  - WEIGHT DECREASED [None]
